FAERS Safety Report 13932197 (Version 2)
Quarter: 2017Q3

REPORT INFORMATION
  Report Type: Spontaneous
  Country: US (occurrence: US)
  Receive Date: 20170904
  Receipt Date: 20170906
  Transmission Date: 20171127
  Serious: No
  Sender: FDA-Public Use
  Company Number: US-PFIZER INC-2017378178

PATIENT
  Age: 63 Year
  Sex: Male
  Weight: 100.24 kg

DRUGS (7)
  1. LYRICA [Suspect]
     Active Substance: PREGABALIN
     Indication: NEURALGIA
     Dosage: 50 MG, 2X/DAY
     Route: 048
     Dates: start: 20170819
  2. COREG [Concomitant]
     Active Substance: CARVEDILOL
     Indication: HYPERTENSION
     Dosage: 6.25 MG, 2X/DAY
     Route: 048
  3. BRILINTA [Concomitant]
     Active Substance: TICAGRELOR
     Indication: PROPHYLAXIS
     Dosage: 90 MG, 2X/DAY
     Route: 048
  4. COREG [Concomitant]
     Active Substance: CARVEDILOL
     Indication: PROPHYLAXIS
  5. CRESTOR [Concomitant]
     Active Substance: ROSUVASTATIN CALCIUM
     Indication: BLOOD CHOLESTEROL INCREASED
     Dosage: 10 MG, 1X/DAY
     Route: 048
  6. AMBIEN [Concomitant]
     Active Substance: ZOLPIDEM TARTRATE
     Indication: SLEEP DISORDER
     Dosage: 10MG, AT NIGHT AS NEEDED
     Route: 048
  7. ENTRESTO [Concomitant]
     Active Substance: SACUBITRIL\VALSARTAN
     Indication: CARDIAC DISORDER
     Dosage: UNK, (49MG/51MG) 2X/DAY
     Route: 048

REACTIONS (4)
  - Dyspnoea [Not Recovered/Not Resolved]
  - Dizziness [Not Recovered/Not Resolved]
  - Fatigue [Unknown]
  - Somnolence [Not Recovered/Not Resolved]
